FAERS Safety Report 18935507 (Version 1)
Quarter: 2021Q1

REPORT INFORMATION
  Report Type: Spontaneous
  Country: US (occurrence: US)
  Receive Date: 20210224
  Receipt Date: 20210224
  Transmission Date: 20210420
  Serious: No
  Sender: FDA-Public Use
  Company Number: US-TERSERA THERAPEUTICS LLC-2020TRS001242

PATIENT

DRUGS (2)
  1. PRIALT [Suspect]
     Active Substance: ZICONOTIDE ACETATE
     Dosage: DILUTED PRIALT (HALF STRENGTH)
     Route: 037
     Dates: start: 20190910
  2. PRIALT [Suspect]
     Active Substance: ZICONOTIDE ACETATE
     Indication: NEURALGIA
     Dosage: UNK
     Route: 037
     Dates: start: 20190829

REACTIONS (5)
  - Myalgia [Not Recovered/Not Resolved]
  - Vision blurred [Not Recovered/Not Resolved]
  - Disorientation [Not Recovered/Not Resolved]
  - Mobility decreased [Not Recovered/Not Resolved]
  - Arthralgia [Not Recovered/Not Resolved]

NARRATIVE: CASE EVENT DATE: 20190901
